FAERS Safety Report 10688825 (Version 3)
Quarter: 2015Q2

REPORT INFORMATION
  Report Type: Report from Study
  Country: MX (occurrence: MX)
  Receive Date: 20150103
  Receipt Date: 20150427
  Transmission Date: 20150821
  Serious: Yes (Death, Hospitalization, Other)
  Sender: FDA-Public Use
  Company Number: MX-BRISTOL-MYERS SQUIBB COMPANY-21204813

PATIENT
  Age: 19 Year
  Sex: Female
  Weight: 43 kg

DRUGS (11)
  1. BLINDED ABATACEPT [Suspect]
     Active Substance: ABATACEPT
     Indication: LUPUS NEPHRITIS
     Dosage: 04JUL13-28AUG13:30 MG/KG  25SEP13-03JUN14:10 MG/KG
     Route: 042
     Dates: start: 20130704, end: 20140603
  2. BLINDED ABATACEPT [Suspect]
     Active Substance: ABATACEPT
     Indication: LUPUS NEPHRITIS
     Dosage: 2 G, UNK
     Route: 048
     Dates: start: 20130704, end: 20140702
  3. CALTRATE [Concomitant]
     Active Substance: CALCIUM CARBONATE
     Indication: PRODUCT USED FOR UNKNOWN INDICATION
     Route: 065
  4. TRAMADOL [Concomitant]
     Active Substance: TRAMADOL
     Indication: PRODUCT USED FOR UNKNOWN INDICATION
     Route: 065
  5. MIDAZOLAM [Concomitant]
     Active Substance: MIDAZOLAM\MIDAZOLAM HYDROCHLORIDE
     Indication: PRODUCT USED FOR UNKNOWN INDICATION
     Route: 065
  6. BLINDED MYCOPHENOLATE MOFETIL [Suspect]
     Active Substance: MYCOPHENOLATE MOFETIL
     Indication: LUPUS NEPHRITIS
     Dosage: 2 G, UNK
     Route: 048
     Dates: start: 20130704, end: 20140702
  7. ENALAPRIL [Concomitant]
     Active Substance: ENALAPRIL
     Indication: PRODUCT USED FOR UNKNOWN INDICATION
     Route: 065
  8. HYDROXYCHLOROQUINE [Concomitant]
     Active Substance: HYDROXYCHLOROQUINE
     Indication: PRODUCT USED FOR UNKNOWN INDICATION
     Route: 065
  9. PLACEBO [Suspect]
     Active Substance: UNSPECIFIED INGREDIENT
     Indication: LUPUS NEPHRITIS
     Dosage: 04JUL13-28AUG13:30 MG/KG  25SEP13-03JUN14:10 MG/KG
     Route: 042
     Dates: start: 20130704, end: 20140603
  10. PLACEBO [Suspect]
     Active Substance: UNSPECIFIED INGREDIENT
     Indication: LUPUS NEPHRITIS
     Dosage: 2 G, UNK
     Route: 048
     Dates: start: 20130704, end: 20140702
  11. PREDNISONE. [Suspect]
     Active Substance: PREDNISONE
     Indication: LUPUS NEPHRITIS
     Dosage: 08NOV-14NOV13=15MG,15NOV-19NOV13=10MG,20NOV13-10JUN14=5MG,14JUN14-ONG=5MG
     Route: 048
     Dates: start: 20130604

REACTIONS (3)
  - Anaemia [Fatal]
  - Acute kidney injury [Fatal]
  - Pneumonia [Fatal]

NARRATIVE: CASE EVENT DATE: 20140702
